FAERS Safety Report 7290290 (Version 3)
Quarter: 2019Q4

REPORT INFORMATION
  Report Type: Spontaneous
  Country: ZA (occurrence: ZA)
  Receive Date: 20100223
  Receipt Date: 20191114
  Transmission Date: 20200122
  Serious: Yes (Other)
  Sender: FDA-Public Use
  Company Number: ZA-GENZYME-POMP-1000847

PATIENT
  Age: 8 Year
  Sex: Male
  Weight: 27.5 kg

DRUGS (2)
  1. MYOZYME [Suspect]
     Active Substance: ALGLUCOSIDASE ALFA
     Indication: GLYCOGEN STORAGE DISEASE TYPE II
     Dosage: 10 MG/KG,QW
     Route: 042
     Dates: start: 20010713
  2. MYOZYME [Suspect]
     Active Substance: ALGLUCOSIDASE ALFA
     Dosage: 40 MG/KG/WEEK= 2532 MG PER WEEEK. AVERAGE OF 51 VIALS OF MYSOZYME PER WEEK X 1/12
     Route: 041
     Dates: start: 20191030

REACTIONS (5)
  - Therapy non-responder [Unknown]
  - Pulmonary function test decreased [Recovering/Resolving]
  - Areflexia [Unknown]
  - Asthenia [Unknown]
  - Muscle enzyme increased [Unknown]

NARRATIVE: CASE EVENT DATE: 201001
